FAERS Safety Report 22974765 (Version 4)
Quarter: 2024Q4

REPORT INFORMATION
  Report Type: Spontaneous
  Country: US (occurrence: US)
  Receive Date: 20230923
  Receipt Date: 20241004
  Transmission Date: 20250115
  Serious: Yes (Hospitalization, Other)
  Sender: NOVARTIS
  Company Number: US-002147023-NVSC2023US206288

PATIENT
  Age: 72 Year
  Sex: Female
  Weight: 83.461 kg

DRUGS (2)
  1. LEQVIO [Suspect]
     Active Substance: INCLISIRAN SODIUM
     Indication: Low density lipoprotein increased
     Dosage: UNK (284 MG/1.5 ML)
     Route: 058
     Dates: start: 202211
  2. LEQVIO [Suspect]
     Active Substance: INCLISIRAN SODIUM
     Indication: Hyperlipidaemia
     Dosage: UNK
     Route: 058
     Dates: start: 20230221, end: 20230904

REACTIONS (8)
  - Low density lipoprotein increased [Not Recovered/Not Resolved]
  - Stevens-Johnson syndrome [Unknown]
  - Drug reaction with eosinophilia and systemic symptoms [Unknown]
  - Pruritus [Unknown]
  - Rash [Unknown]
  - Diarrhoea [Unknown]
  - Vomiting [Unknown]
  - Blister [Unknown]

NARRATIVE: CASE EVENT DATE: 20230910
